FAERS Safety Report 23460075 (Version 2)
Quarter: 2024Q1

REPORT INFORMATION
  Report Type: Spontaneous
  Country: US (occurrence: US)
  Receive Date: 20240131
  Receipt Date: 20240212
  Transmission Date: 20240410
  Serious: Yes (Death, Life-Threatening, Hospitalization, Other)
  Sender: FDA-Public Use
  Company Number: None

PATIENT
  Age: 70 Year
  Sex: Male

DRUGS (3)
  1. PROPOFOL [Suspect]
     Active Substance: PROPOFOL
     Indication: Induction and maintenance of anaesthesia
     Dosage: RESUMED, 10.5 MG/KG/HR FOR MAINTENANCE
  2. PROPOFOL [Suspect]
     Active Substance: PROPOFOL
     Dosage: RESUMED AT 2.4 MG/KG/HR
  3. PROPOFOL [Suspect]
     Active Substance: PROPOFOL
     Dosage: INDUCTION

REACTIONS (11)
  - Multiple organ dysfunction syndrome [Fatal]
  - Propofol infusion syndrome [Fatal]
  - Acute kidney injury [Fatal]
  - Disseminated intravascular coagulation [Fatal]
  - Rhabdomyolysis [Fatal]
  - Lactic acidosis [Fatal]
  - Leukocytosis [Fatal]
  - Respiratory acidosis [Fatal]
  - Metabolic acidosis [Fatal]
  - Hepatic enzyme increased [Fatal]
  - Post procedural hypotension [Fatal]
